FAERS Safety Report 4550044-4 (Version None)
Quarter: 2005Q1

REPORT INFORMATION
  Report Type: 
  Country: None (occurrence: None)
  Receive Date: 20050112
  Receipt Date: 20050104
  Transmission Date: 20050727
  Serious: Yes (Hospitalization)
  Sender: FDA-Public Use
  Company Number: 200510047FR

PATIENT
  Age: 56 Year
  Sex: Male
  Weight: 71 kg

DRUGS (2)
  1. FLAGYL [Suspect]
     Indication: CROHN'S DISEASE
     Route: 048
     Dates: start: 20041027, end: 20041101
  2. AUGMENTIN '125' [Suspect]
     Indication: CROHN'S DISEASE
     Route: 048
     Dates: start: 20041030, end: 20041101

REACTIONS (5)
  - ACUTE GENERALISED EXANTHEMATOUS PUSTULOSIS [None]
  - EXANTHEM [None]
  - INFLAMMATION [None]
  - LEUKOCYTOSIS [None]
  - RASH MACULAR [None]
